FAERS Safety Report 7517115-1 (Version None)
Quarter: 2011Q2

REPORT INFORMATION
  Report Type: 
  Country: None (occurrence: None)
  Receive Date: 20110601
  Receipt Date: 20110524
  Transmission Date: 20111010
  Serious: Yes (Hospitalization, Other)
  Sender: FDA-Public Use
  Company Number: KR-UCBSA-030721

PATIENT
  Sex: Female
  Weight: 48 kg

DRUGS (16)
  1. METHOTREXATE [Concomitant]
     Indication: RHEUMATOID ARTHRITIS
     Route: 048
     Dates: start: 20060808
  2. RANITIDINE HCL [Concomitant]
     Indication: PROPHYLAXIS
     Route: 048
     Dates: start: 20110404
  3. TRIAMCINOLONE [Concomitant]
     Indication: RHEUMATOID ARTHRITIS
     Route: 048
     Dates: start: 20050923
  4. CEFTIZOXIME NA [Concomitant]
     Indication: PNEUMONIA
     Route: 042
     Dates: start: 20110404, end: 20110407
  5. LEVOFLOXACIN [Concomitant]
     Indication: PNEUMONIA
     Route: 042
     Dates: start: 20110407, end: 20110421
  6. HYDROCHLOROTHIAZIDE [Concomitant]
     Indication: GENERALISED OEDEMA
     Route: 048
     Dates: start: 20050923
  7. FOLIC ACID [Concomitant]
     Indication: PROPHYLAXIS
     Route: 048
     Dates: start: 20060808
  8. REBAMIPIDE [Concomitant]
     Indication: PROPHYLAXIS
     Route: 048
     Dates: start: 20050923
  9. NABUMETON [Concomitant]
     Indication: RHEUMATOID ARTHRITIS
     Route: 048
     Dates: start: 20050923
  10. MEROPENEM [Concomitant]
     Indication: PNEUMONIA
     Route: 042
     Dates: start: 20110407, end: 20110421
  11. COUGH SYRUP [Concomitant]
     Indication: PNEUMONIA
     Route: 048
     Dates: start: 20110404
  12. CIMZIA [Suspect]
     Indication: RHEUMATOID ARTHRITIS
     Dosage: NO OF DOSES RECEIVED:13
     Route: 058
     Dates: start: 20101014, end: 20110331
  13. VALACYCLOVIR [Concomitant]
     Indication: HERPES VIRUS INFECTION
     Route: 048
     Dates: start: 20110406, end: 20110421
  14. CLARITHROMYCIN [Concomitant]
     Indication: PNEUMONIA
     Route: 048
     Dates: start: 20110404, end: 20110407
  15. CAROL F [Concomitant]
     Indication: PNEUMONIA
     Dosage: 1 TABLET
     Route: 048
     Dates: start: 20110406, end: 20110421
  16. ERDOSTEIN [Concomitant]
     Indication: PNEUMONIA
     Route: 048
     Dates: start: 20110404

REACTIONS (1)
  - TUBERCULOSIS [None]
